FAERS Safety Report 7684191-5 (Version None)
Quarter: 2011Q3

REPORT INFORMATION
  Report Type: 
  Country: None (occurrence: None)
  Receive Date: 20110815
  Receipt Date: 20110805
  Transmission Date: 20111222
  Serious: Yes (Other)
  Sender: FDA-Public Use
  Company Number: US-BAYER-200829340NA

PATIENT
  Age: 48 Year
  Sex: Female
  Weight: 132 kg

DRUGS (60)
  1. METOPROLOL TARTRATE [Concomitant]
  2. COUMADIN [Concomitant]
  3. METOLAZONE [Concomitant]
  4. LIPITOR [Concomitant]
  5. ZOLOFT [Concomitant]
  6. COREG [Concomitant]
  7. JANUVIA [Concomitant]
  8. GADOLINIUM IN UNSPECIFIED DRUG [Suspect]
     Dosage: UNK UNK, ONCE
     Dates: start: 20031204, end: 20031204
  9. ELAVIL [Concomitant]
  10. ONE-A-DAY [MINERALS NOS,VITAMINS NOS] [Concomitant]
  11. POTASSIUM CHLORIDE [Concomitant]
  12. SILDENAFIL CITRATE [Concomitant]
  13. HYZAAR [Concomitant]
  14. OPTIMARK [Suspect]
     Indication: NUCLEAR MAGNETIC RESONANCE IMAGING
  15. SEROQUEL [Concomitant]
  16. TEMAZEPAM [Concomitant]
  17. MEXILETINE HYDROCHLORIDE [Concomitant]
  18. LASIX [Concomitant]
  19. VITAMIN TAB [Concomitant]
  20. OXYCONTIN [Concomitant]
  21. AVALIDE [Concomitant]
  22. XOPENEX [Concomitant]
  23. LASIX [Concomitant]
  24. LIDODERM [Concomitant]
  25. SPIRONOLACTONE [Concomitant]
  26. METOPROLOL TARTRATE [Concomitant]
  27. NOVOLOG [Concomitant]
  28. DIGOXIN [Concomitant]
  29. PLAVIX [Concomitant]
  30. OMNISCAN [Suspect]
     Indication: NUCLEAR MAGNETIC RESONANCE IMAGING
     Dosage: 20 ML, ONCE
     Dates: start: 20000816, end: 20000816
  31. SINGULAIR [Concomitant]
  32. ALTACE [Concomitant]
  33. VAGIFEM [Concomitant]
  34. PHENERGAN HCL [Concomitant]
  35. MAGNESIUM OXIDE [Concomitant]
  36. IMITREX [Concomitant]
  37. MULTIHANCE [Suspect]
     Indication: NUCLEAR MAGNETIC RESONANCE IMAGING
  38. PROHANCE [Suspect]
     Indication: NUCLEAR MAGNETIC RESONANCE IMAGING
  39. ALDACTONE [POTASSIUM CANRENOATE] [Concomitant]
  40. IMITREX [Concomitant]
  41. AMBIEN [Concomitant]
  42. SINGULAIR [Concomitant]
  43. LEVOTHYROXINE SODIUM [Concomitant]
  44. HYDROCODONE [Concomitant]
  45. EFFEXOR XR [Concomitant]
  46. XANAX [Concomitant]
  47. MAGNEVIST [Suspect]
     Indication: NUCLEAR MAGNETIC RESONANCE IMAGING
     Dosage: UNK
     Dates: start: 20040823, end: 20040823
  48. ADVAIR DISKUS 100/50 [Concomitant]
  49. PREDNISONE [Concomitant]
  50. TYLENOL W/ CODEINE NO. 4 [Concomitant]
  51. AMITRIPTYLINE HCL [Concomitant]
  52. NEURONTIN [Concomitant]
  53. FLECAINIDE ACETATE [Concomitant]
  54. PROTONIX [Concomitant]
  55. NEURONTIN [Concomitant]
  56. VICODIN [Concomitant]
  57. PROTONIX [Concomitant]
  58. AMIODARONE HCL [Concomitant]
  59. NOVOLIN [INSULIN] [Concomitant]
  60. METFORMIN HCL [Concomitant]

REACTIONS (17)
  - ANXIETY [None]
  - PARAESTHESIA [None]
  - LOWER EXTREMITY MASS [None]
  - PAIN IN EXTREMITY [None]
  - PAIN [None]
  - EMOTIONAL DISTRESS [None]
  - SKIN DISCOLOURATION [None]
  - GENERAL PHYSICAL HEALTH DETERIORATION [None]
  - SKIN ULCER [None]
  - MOBILITY DECREASED [None]
  - RASH [None]
  - MUSCULOSKELETAL STIFFNESS [None]
  - JOINT SWELLING [None]
  - NEPHROGENIC SYSTEMIC FIBROSIS [None]
  - INJURY [None]
  - MUSCLE SPASMS [None]
  - SKIN HYPOPIGMENTATION [None]
